FAERS Safety Report 16260055 (Version 1)
Quarter: 2019Q2

REPORT INFORMATION
  Report Type: Spontaneous
  Country: CN (occurrence: CN)
  Receive Date: 20190501
  Receipt Date: 20190501
  Transmission Date: 20190711
  Serious: Yes (Hospitalization, Other)
  Sender: FDA-Public Use
  Company Number: CN-ROCHE-2308336

PATIENT
  Age: 69 Year
  Sex: Female
  Weight: 50 kg

DRUGS (1)
  1. XELODA [Suspect]
     Active Substance: CAPECITABINE
     Indication: PANCREATIC CARCINOMA
     Route: 048
     Dates: start: 20190316, end: 20190401

REACTIONS (5)
  - Cleft palate [Recovering/Resolving]
  - Intentional product use issue [Unknown]
  - Off label use [Unknown]
  - Noninfective gingivitis [Recovering/Resolving]
  - Deafness [Recovering/Resolving]

NARRATIVE: CASE EVENT DATE: 20190330
